FAERS Safety Report 8557290-3 (Version None)
Quarter: 2012Q3

REPORT INFORMATION
  Report Type: 
  Country: None (occurrence: None)
  Receive Date: 20120726
  Receipt Date: 20120726
  Transmission Date: 20120928
  Serious: Yes (Other)
  Sender: FDA-Public Use
  Company Number: None

PATIENT
  Sex: Male

DRUGS (1)
  1. BICALUTAMIDE [Suspect]
     Indication: PROSTATE CANCER
     Dosage: 50MG QD ORAL
     Route: 048
     Dates: start: 20120530, end: 20120724

REACTIONS (2)
  - OEDEMA PERIPHERAL [None]
  - PAIN [None]
